FAERS Safety Report 8783842 (Version 1)
Quarter: 2012Q4

REPORT INFORMATION
  Report Type: Spontaneous
  Country: US (occurrence: None)
  Receive Date: 20120906
  Receipt Date: 20120906
  Transmission Date: 20130627
  Serious: Yes (Hospitalization)
  Sender: FDA-Public Use
  Company Number: None

PATIENT
  Age: 66 Year
  Sex: Male
  Weight: 87.9 kg

DRUGS (1)
  1. PRADAXA [Suspect]
     Indication: CHRONIC ATRIAL FIBRILLATION
     Route: 048
     Dates: start: 20120301, end: 20120820

REACTIONS (1)
  - Cerebral haemorrhage [None]
